FAERS Safety Report 15313244 (Version 1)
Quarter: 2018Q3

REPORT INFORMATION
  Report Type: Report from Study
  Country: None (occurrence: US)
  Receive Date: 20180823
  Receipt Date: 20180823
  Transmission Date: 20181010
  Serious: Yes (Death, Hospitalization)
  Sender: FDA-Public Use
  Company Number: US-VIFOR (INTERNATIONAL) INC.-VIT-2018-08260

PATIENT
  Age: 91 Year
  Sex: Male

DRUGS (13)
  1. PRESERVISION [Concomitant]
     Active Substance: MINERALS\VITAMINS
  2. CARVEDILOL. [Concomitant]
     Active Substance: CARVEDILOL
  3. PRILOSEC [Concomitant]
     Active Substance: OMEPRAZOLE MAGNESIUM
  4. SIMVASTATIN. [Concomitant]
     Active Substance: SIMVASTATIN
  5. VITAMINS NOS [Concomitant]
     Active Substance: VITAMINS
  6. ENTRESTO [Concomitant]
     Active Substance: SACUBITRIL\VALSARTAN
  7. LACTAID [Concomitant]
     Active Substance: LACTASE
  8. TORASEMIDE [Concomitant]
     Active Substance: TORSEMIDE
  9. ASPIRIN. [Concomitant]
     Active Substance: ASPIRIN
  10. GLUCOSAMINE [Concomitant]
     Active Substance: GLUCOSAMINE
  11. VITAMIN D3 [Concomitant]
     Active Substance: CHOLECALCIFEROL
  12. ACETYLSALICYLIC ACID~~DIPYRIDAMOLE [Concomitant]
  13. VELTASSA [Suspect]
     Active Substance: PATIROMER
     Indication: HYPERKALAEMIA
     Route: 048
     Dates: start: 20180316, end: 20180718

REACTIONS (4)
  - Renal failure [Fatal]
  - Transfusion [Recovered/Resolved]
  - Dehydration [Recovered/Resolved]
  - Renal disorder [Recovered/Resolved]

NARRATIVE: CASE EVENT DATE: 201805
